FAERS Safety Report 14357891 (Version 3)
Quarter: 2018Q1

REPORT INFORMATION
  Report Type: Spontaneous
  Country: US (occurrence: US)
  Receive Date: 20180105
  Receipt Date: 20180126
  Transmission Date: 20180509
  Serious: Yes (Other)
  Sender: FDA-Public Use
  Company Number: US-GLAXOSMITHKLINE-US2018GSK001387

PATIENT
  Age: 36 Year
  Sex: Female

DRUGS (2)
  1. NUCALA [Suspect]
     Active Substance: MEPOLIZUMAB
     Indication: ASTHMA
  2. NUCALA [Suspect]
     Active Substance: MEPOLIZUMAB
     Indication: HYPEREOSINOPHILIC SYNDROME
     Dosage: 100 MG, CYC EVERY 4 WEEKS
     Route: 058
     Dates: start: 2017

REACTIONS (11)
  - Asthma [Unknown]
  - Drug specific antibody [Unknown]
  - Disease progression [Unknown]
  - Abdominal symptom [Unknown]
  - Rash [Unknown]
  - Symptom recurrence [Unknown]
  - Abdominal pain [Unknown]
  - Hypereosinophilic syndrome [Unknown]
  - Condition aggravated [Unknown]
  - Cutaneous symptom [Unknown]
  - Eosinophil count increased [Unknown]

NARRATIVE: CASE EVENT DATE: 201712
